FAERS Safety Report 20941569 (Version 2)
Quarter: 2022Q2

REPORT INFORMATION
  Report Type: Spontaneous
  Country: US (occurrence: US)
  Receive Date: 20220610
  Receipt Date: 20220615
  Transmission Date: 20220720
  Serious: No
  Sender: FDA-Public Use
  Company Number: US-ELI_LILLY_AND_COMPANY-US202205009191

PATIENT
  Sex: Female

DRUGS (2)
  1. VERZENIO [Suspect]
     Active Substance: ABEMACICLIB
     Indication: Product used for unknown indication
     Dosage: 150 MG, BID
     Route: 065
     Dates: start: 202204
  2. VERZENIO [Suspect]
     Active Substance: ABEMACICLIB
     Dosage: 150 MG, BID
     Route: 065
     Dates: start: 20220512

REACTIONS (8)
  - Viral infection [Unknown]
  - Blood potassium decreased [Recovered/Resolved]
  - Full blood count decreased [Recovered/Resolved]
  - Pyrexia [Unknown]
  - Fatigue [Unknown]
  - Neutropenia [Recovered/Resolved]
  - White blood cell count decreased [Unknown]
  - Vomiting [Unknown]

NARRATIVE: CASE EVENT DATE: 20220501
